FAERS Safety Report 9096370 (Version 2)
Quarter: 2014Q2

REPORT INFORMATION
  Report Type: Report from Study
  Country: FR (occurrence: FR)
  Receive Date: 20130207
  Receipt Date: 20140609
  Transmission Date: 20141212
  Serious: Yes (Hospitalization, Other)
  Sender: FDA-Public Use
  Company Number: FR-009507513-2012SP021786

PATIENT
  Age: 52 Year
  Sex: Male
  Weight: 74 kg

DRUGS (22)
  1. BOCEPREVIR [Suspect]
     Indication: HEPATITIS C
     Dosage: 800 MG, TID
     Route: 048
     Dates: start: 20110413, end: 20110620
  2. VIRAFERONPEG [Suspect]
     Indication: HEPATITIS C
     Dosage: 100 ?G, QW
     Dates: start: 20110317, end: 20110620
  3. REBETOL [Suspect]
     Indication: HEPATITIS C
     Dosage: 1200 MG, QD
     Dates: start: 20110317, end: 20110620
  4. LANTUS [Suspect]
     Indication: DIABETES MELLITUS
     Dosage: 26 IU, QD
  5. NOVORAPID [Suspect]
     Indication: DIABETES MELLITUS
  6. LEVOTHYROX [Concomitant]
     Indication: HYPOTHYROIDISM
     Dosage: 175 ?G, QD
  7. INEXIUM [Concomitant]
     Indication: DIABETES MELLITUS
     Dosage: UNK
  8. DOLIPRANE [Concomitant]
     Indication: PAIN
     Dosage: 1 G, TID
  9. CARDENSIEL [Concomitant]
     Indication: HYPERTENSION
     Dosage: 0.5 DF, QD
  10. DIFFU-K [Concomitant]
     Indication: HYPERKALAEMIA
     Dosage: 2 DF, BID
  11. KARDEGIC [Concomitant]
     Indication: PLATELET AGGREGATION
     Dosage: 75 MG, QD
  12. PROTER [Concomitant]
     Indication: PRODUCT USED FOR UNKNOWN INDICATION
  13. THIAMINE [Concomitant]
     Indication: PRODUCT USED FOR UNKNOWN INDICATION
  14. PYRIDOXINE [Concomitant]
     Indication: PRODUCT USED FOR UNKNOWN INDICATION
  15. SPECIAFOLDINE [Concomitant]
     Indication: PRODUCT USED FOR UNKNOWN INDICATION
  16. DUPHALAC [Concomitant]
     Indication: PRODUCT USED FOR UNKNOWN INDICATION
  17. GENTALLINE [Concomitant]
     Indication: PRODUCT USED FOR UNKNOWN INDICATION
  18. BRISTOPEN [Concomitant]
     Indication: PRODUCT USED FOR UNKNOWN INDICATION
  19. OFLOCET (OFLOXACIN) [Concomitant]
     Indication: PRODUCT USED FOR UNKNOWN INDICATION
  20. BIONOLYTE [Concomitant]
     Indication: PRODUCT USED FOR UNKNOWN INDICATION
  21. DAFALGAN [Concomitant]
     Indication: PRODUCT USED FOR UNKNOWN INDICATION
  22. ZOVIRAX [Concomitant]
     Indication: PRODUCT USED FOR UNKNOWN INDICATION

REACTIONS (2)
  - Endocarditis [Unknown]
  - Confusional state [Unknown]
